FAERS Safety Report 8493590-3 (Version None)
Quarter: 2012Q3

REPORT INFORMATION
  Report Type: 
  Country: None (occurrence: None)
  Receive Date: 20120706
  Receipt Date: 20120626
  Transmission Date: 20120928
  Serious: Yes (Other)
  Sender: FDA-Public Use
  Company Number: FR-PFIZER INC-2012154177

PATIENT
  Age: 40 Year
  Sex: Male

DRUGS (1)
  1. DOSTINEX [Suspect]

REACTIONS (1)
  - LUNG DISORDER [None]
